FAERS Safety Report 19770624 (Version 2)
Quarter: 2021Q3

REPORT INFORMATION
  Report Type: Spontaneous
  Country: US (occurrence: US)
  Receive Date: 20210831
  Receipt Date: 20210831
  Transmission Date: 20211014
  Serious: No
  Sender: FDA-Public Use
  Company Number: US-BAYER-2021-201698

PATIENT

DRUGS (1)
  1. ALEVE [Suspect]
     Active Substance: NAPROXEN SODIUM
     Dosage: 2 UNK (ONE PILL IN THE MORNING AND ONE AT NIGHT)

REACTIONS (2)
  - Incorrect dose administered [None]
  - Drug effect less than expected [Unknown]
